FAERS Safety Report 19948136 (Version 3)
Quarter: 2021Q4

REPORT INFORMATION
  Report Type: Report from Study
  Country: None (occurrence: GR)
  Receive Date: 20211013
  Receipt Date: 20211029
  Transmission Date: 20220304
  Serious: Yes (Hospitalization)
  Sender: FDA-Public Use
  Company Number: GR-ABBVIE-21K-066-4113109-00

PATIENT
  Sex: Male
  Weight: 75 kg

DRUGS (9)
  1. CARBIDOPA\LEVODOPA [Suspect]
     Active Substance: CARBIDOPA\LEVODOPA
     Indication: Parkinson^s disease
     Dosage: MORNING DOSE: 13 ML; CONTINUOUS RATE: 2.8 ML/H; EXTRA DOSE: 1 ML
     Route: 050
     Dates: start: 20210126, end: 20211007
  2. CARBIDOPA\LEVODOPA [Suspect]
     Active Substance: CARBIDOPA\LEVODOPA
     Dosage: MORNING DOSE: 11.8 ML; CONTINUOUS RATE: 2 ML/H; EXTRA DOSE: 1ML
     Route: 050
     Dates: start: 202110
  3. EXELON [Concomitant]
     Active Substance: RIVASTIGMINE TARTRATE
     Indication: Product used for unknown indication
     Route: 048
  4. QUETIAPINE [Concomitant]
     Active Substance: QUETIAPINE
     Indication: Product used for unknown indication
     Route: 048
  5. CLONAZEPAM [Concomitant]
     Active Substance: CLONAZEPAM
     Indication: Product used for unknown indication
     Route: 048
  6. ALMERZAC [Concomitant]
     Indication: Product used for unknown indication
     Dates: start: 20211005
  7. ETIAPIN [Concomitant]
     Indication: Product used for unknown indication
     Dates: start: 20211005
  8. MIDODRINE HYDROCHLORIDE [Concomitant]
     Active Substance: MIDODRINE HYDROCHLORIDE
     Indication: Product used for unknown indication
     Dates: start: 20211005
  9. DOSPELIN [Concomitant]
     Indication: Product used for unknown indication
     Dates: start: 20211005

REACTIONS (3)
  - Urinary tract infection [Recovered/Resolved]
  - Seizure [Unknown]
  - Prostatitis [Not Recovered/Not Resolved]
